FAERS Safety Report 4980810-2 (Version None)
Quarter: 2006Q2

REPORT INFORMATION
  Report Type: 
  Country: None (occurrence: None)
  Receive Date: 20060424
  Receipt Date: 20060322
  Transmission Date: 20061013
  Serious: Yes (Hospitalization, Disabling)
  Sender: FDA-Public Use
  Company Number: US-MERCK-0603USA03631

PATIENT
  Age: 64 Year
  Sex: Female
  Weight: 93 kg

DRUGS (20)
  1. VIOXX [Suspect]
     Indication: ARTHRITIS
     Route: 048
     Dates: start: 20010501, end: 20040201
  2. CLONAZEPAM [Concomitant]
     Route: 065
  3. ENALAPRIL MALEATE [Concomitant]
     Route: 065
  4. SEREVENT [Concomitant]
     Route: 065
  5. NAPROXEN [Concomitant]
     Route: 065
  6. ALLOPURINOL [Concomitant]
     Route: 065
  7. HYDROCHLOROTHIAZIDE [Concomitant]
     Route: 065
  8. NYSTOP [Concomitant]
     Route: 065
  9. FLUOXETINE [Concomitant]
     Route: 065
  10. COMBIVENT [Concomitant]
     Route: 065
  11. PREVACID [Concomitant]
     Route: 065
  12. REMERON [Concomitant]
     Route: 065
  13. TRAZODONE HYDROCHLORIDE [Concomitant]
     Route: 065
  14. SEROQUEL [Concomitant]
     Route: 065
  15. PAXIL [Concomitant]
     Route: 065
  16. SINGULAIR [Concomitant]
     Route: 065
  17. LIPITOR [Concomitant]
     Route: 065
  18. LISINOPRIL [Concomitant]
     Route: 065
  19. METOPROLOL [Concomitant]
     Route: 065
  20. LESCOL [Concomitant]
     Route: 065

REACTIONS (14)
  - ARTERIOSCLEROSIS CORONARY ARTERY [None]
  - ARTHROPATHY [None]
  - BACK PAIN [None]
  - BIPOLAR DISORDER [None]
  - BRADYCARDIA [None]
  - CARDIOMYOPATHY [None]
  - DEPRESSION [None]
  - ELECTROCARDIOGRAM ST SEGMENT DEPRESSION [None]
  - HYPOKALAEMIA [None]
  - HYPOTENSION [None]
  - INTRACARDIAC THROMBUS [None]
  - MENTAL DISORDER [None]
  - NEPHROLITHIASIS [None]
  - TACHYCARDIA [None]
